FAERS Safety Report 25143582 (Version 2)
Quarter: 2025Q2

REPORT INFORMATION
  Report Type: Spontaneous
  Country: TR (occurrence: TR)
  Receive Date: 20250401
  Receipt Date: 20250403
  Transmission Date: 20250716
  Serious: Yes (Hospitalization)
  Sender: SANOFI AVENTIS
  Company Number: TR-SA-2025SA075680

PATIENT
  Age: 75 Year
  Sex: Female
  Weight: 94 kg

DRUGS (7)
  1. TOUJEO [Suspect]
     Active Substance: INSULIN GLARGINE
     Indication: Diabetes mellitus
     Dosage: 20 IU, QD
     Route: 058
  2. JARDIANCE [Concomitant]
     Active Substance: EMPAGLIFLOZIN
  3. Beloc [Concomitant]
  4. Rivoksar [Concomitant]
  5. LINAGLIPTIN [Concomitant]
     Active Substance: LINAGLIPTIN
  6. LACIDIPINE [Concomitant]
     Active Substance: LACIDIPINE
  7. LASIX [Concomitant]
     Active Substance: FUROSEMIDE

REACTIONS (2)
  - Blood glucose increased [Recovered/Resolved]
  - Device defective [Unknown]

NARRATIVE: CASE EVENT DATE: 20250307
